FAERS Safety Report 6258350-2 (Version None)
Quarter: 2009Q3

REPORT INFORMATION
  Report Type: 
  Country: None (occurrence: None)
  Receive Date: 20090702
  Receipt Date: 20090702
  Transmission Date: 20100115
  Serious: Yes (Other)
  Sender: FDA-Public Use
  Company Number: None

PATIENT
  Sex: Female
  Weight: 99.7913 kg

DRUGS (2)
  1. PEXEVA [Suspect]
     Indication: MAJOR DEPRESSION
     Dosage: 60 MG DAILY PO
     Route: 048
     Dates: start: 20050101, end: 20090420
  2. PEXEVA [Suspect]
     Indication: PANIC DISORDER
     Dosage: 60 MG DAILY PO
     Route: 048
     Dates: start: 20050101, end: 20090420

REACTIONS (4)
  - IMPAIRED HEALING [None]
  - OEDEMA PERIPHERAL [None]
  - SKIN ULCER [None]
  - VENOUS INSUFFICIENCY [None]
